FAERS Safety Report 8003870-3 (Version None)
Quarter: 2011Q4

REPORT INFORMATION
  Report Type: 
  Country: None (occurrence: None)
  Receive Date: 20111222
  Receipt Date: 20111220
  Transmission Date: 20120403
  Serious: No
  Sender: FDA-Public Use
  Company Number: US-TEVA-314802USA

PATIENT
  Sex: Female
  Weight: 59.02 kg

DRUGS (3)
  1. PLAN B ONE-STEP [Suspect]
     Indication: POST COITAL CONTRACEPTION
     Dosage: 1.5 MILLIGRAM;
     Route: 048
     Dates: start: 20111216, end: 20111216
  2. ANTIBIOTIC [Concomitant]
     Indication: EYE INFECTION
     Dates: start: 20111205, end: 20111210
  3. DEPO-PROVERA [Suspect]
     Indication: CONTRACEPTION
     Dates: start: 20090101, end: 20110909

REACTIONS (3)
  - POLLAKIURIA [None]
  - ABDOMINAL PAIN LOWER [None]
  - NIPPLE PAIN [None]
